FAERS Safety Report 7861298-0 (Version None)
Quarter: 2011Q4

REPORT INFORMATION
  Report Type: 
  Country: None (occurrence: None)
  Receive Date: 20111027
  Receipt Date: 20111021
  Transmission Date: 20120403
  Serious: Yes (Hospitalization)
  Sender: FDA-Public Use
  Company Number: PHHY2011FR93510

PATIENT
  Age: 80 Year
  Sex: Male

DRUGS (3)
  1. VOLTAREN [Suspect]
     Indication: TENDONITIS
     Dosage: 150 MG DAILY
  2. VOLTAREN [Suspect]
     Dosage: 75 MG DAILY
  3. PROTON PUMP INHIBITORS [Concomitant]

REACTIONS (3)
  - DIZZINESS [None]
  - DECREASED APPETITE [None]
  - FAECES DISCOLOURED [None]
